FAERS Safety Report 15883526 (Version 6)
Quarter: 2020Q1

REPORT INFORMATION
  Report Type: Report from Study
  Country: US (occurrence: US)
  Receive Date: 20190129
  Receipt Date: 20200330
  Transmission Date: 20200409
  Serious: Yes (Other)
  Sender: FDA-Public Use
  Company Number: PHEH2019US003925

PATIENT
  Age: 21 Year
  Sex: Female

DRUGS (2)
  1. GILENYA [Suspect]
     Active Substance: FINGOLIMOD HYDROCHLORIDE
     Indication: MULTIPLE SCLEROSIS
     Dosage: 0.5 MG, QD
     Route: 048
     Dates: start: 20181128
  2. GILENYA [Suspect]
     Active Substance: FINGOLIMOD HYDROCHLORIDE
     Dosage: 0.5 MG, QOD
     Route: 048

REACTIONS (20)
  - Migraine [Not Recovered/Not Resolved]
  - Prescribed underdose [Unknown]
  - Nausea [Not Recovered/Not Resolved]
  - Diarrhoea [Recovered/Resolved]
  - Oropharyngeal pain [Unknown]
  - Nasal congestion [Unknown]
  - Blood glucose decreased [Unknown]
  - Diarrhoea [Unknown]
  - Depression [Unknown]
  - Lethargy [Unknown]
  - Chills [Not Recovered/Not Resolved]
  - Dizziness [Unknown]
  - Vitamin B12 decreased [Unknown]
  - Dysarthria [Unknown]
  - Hepatic enzyme increased [Unknown]
  - Nasopharyngitis [Unknown]
  - Multiple sclerosis relapse [Unknown]
  - Insomnia [Unknown]
  - Back pain [Not Recovered/Not Resolved]
  - Pain [Not Recovered/Not Resolved]

NARRATIVE: CASE EVENT DATE: 201901
